FAERS Safety Report 9817416 (Version 1)
Quarter: 2014Q1

REPORT INFORMATION
  Report Type: Spontaneous
  Country: US (occurrence: US)
  Receive Date: 20140115
  Receipt Date: 20140115
  Transmission Date: 20141002
  Serious: No
  Sender: FDA-Public Use
  Company Number: US-BIOGENIDEC-2014BI003753

PATIENT
  Sex: Female

DRUGS (1)
  1. TYSABRI [Suspect]
     Indication: MULTIPLE SCLEROSIS
     Route: 042
     Dates: start: 20081030

REACTIONS (10)
  - Influenza like illness [Not Recovered/Not Resolved]
  - Joint swelling [Unknown]
  - Skin warm [Unknown]
  - Somnolence [Unknown]
  - Band sensation [Unknown]
  - Pain [Unknown]
  - Temperature intolerance [Unknown]
  - Bone pain [Unknown]
  - Chills [Unknown]
  - Fatigue [Unknown]
